FAERS Safety Report 21550292 (Version 2)
Quarter: 2022Q4

REPORT INFORMATION
  Report Type: Spontaneous
  Country: US (occurrence: US)
  Receive Date: 20221103
  Receipt Date: 20221206
  Transmission Date: 20230112
  Serious: No
  Sender: FDA-Public Use
  Company Number: US-BRISTOL-MYERS SQUIBB COMPANY-2022-132068

PATIENT
  Age: 77 Year
  Sex: Female
  Weight: 56.25 kg

DRUGS (1)
  1. REVLIMID [Suspect]
     Active Substance: LENALIDOMIDE
     Indication: Plasma cell myeloma
     Dosage: FREQUENCY : 21D ON 7D OFF
     Route: 048

REACTIONS (5)
  - Pain in extremity [Unknown]
  - Platelet count decreased [Unknown]
  - Full blood count decreased [Unknown]
  - Cough [Unknown]
  - Bronchitis [Unknown]
